FAERS Safety Report 8223282-7 (Version None)
Quarter: 2012Q1

REPORT INFORMATION
  Report Type: 
  Country: None (occurrence: None)
  Receive Date: 20120321
  Receipt Date: 20120308
  Transmission Date: 20120608
  Serious: Yes (Other)
  Sender: FDA-Public Use
  Company Number: JP-ROCHE-1050125

PATIENT
  Sex: Male

DRUGS (16)
  1. RANIBIZUMAB [Suspect]
     Route: 050
     Dates: start: 20090701
  2. RANIBIZUMAB [Suspect]
     Route: 050
     Dates: start: 20090729
  3. RANIBIZUMAB [Suspect]
     Route: 050
     Dates: start: 20110330
  4. ASPIRIN [Concomitant]
  5. RANIBIZUMAB [Suspect]
     Route: 050
     Dates: start: 20110302
  6. SIGMART [Concomitant]
  7. RANIBIZUMAB [Suspect]
     Indication: AGE-RELATED MACULAR DEGENERATION
     Route: 050
     Dates: start: 20090603
  8. RANIBIZUMAB [Suspect]
     Route: 050
     Dates: start: 20110429
  9. LEVOFLOXACIN [Concomitant]
     Dates: start: 20090601, end: 20110401
  10. NORVASC [Concomitant]
  11. GASMOTIN [Concomitant]
  12. ISOSORBIDE DINITRATE [Concomitant]
  13. VISUDYNE [Concomitant]
     Dates: start: 20090201, end: 20090501
  14. OLMESARTAN MEDOXOMIL [Concomitant]
  15. CARVEDILOL [Concomitant]
  16. LANSOPRAZOLE [Concomitant]

REACTIONS (2)
  - CATARACT [None]
  - VISUAL ACUITY REDUCED [None]
